FAERS Safety Report 7482669-0 (Version None)
Quarter: 2011Q2

REPORT INFORMATION
  Report Type: 
  Country: None (occurrence: None)
  Receive Date: 20110516
  Receipt Date: 20110512
  Transmission Date: 20111010
  Serious: Yes (Hospitalization)
  Sender: FDA-Public Use
  Company Number: PHHO2010FR08795

PATIENT
  Sex: Male
  Weight: 104 kg

DRUGS (5)
  1. ANTIBIOTICS [Concomitant]
  2. CERTICAN [Suspect]
     Indication: RENAL TRANSPLANT
     Dosage: 3 MG, DAILY
     Route: 048
     Dates: start: 20100318, end: 20100403
  3. MYFORTIC [Concomitant]
     Indication: RENAL TRANSPLANT
     Dosage: 1440 MG DAILY
     Dates: start: 20091203, end: 20100316
  4. MYFORTIC [Concomitant]
     Dosage: 1080 MG DAILY
     Route: 048
     Dates: start: 20100317, end: 20100317
  5. MYFORTIC [Concomitant]
     Dosage: 720 MG DAILY
     Dates: start: 20100318, end: 20100403

REACTIONS (4)
  - LUNG DISORDER [None]
  - PYREXIA [None]
  - DYSPNOEA [None]
  - LUNG INFECTION [None]
